FAERS Safety Report 6330675-1 (Version None)
Quarter: 2009Q3

REPORT INFORMATION
  Report Type: 
  Country: None (occurrence: None)
  Receive Date: 20090827
  Receipt Date: 20090820
  Transmission Date: 20100115
  Serious: Yes (Hospitalization)
  Sender: FDA-Public Use
  Company Number: US-ABBOTT-09P-163-0592361-00

PATIENT
  Sex: Female
  Weight: 111 kg

DRUGS (12)
  1. TRILIPIX [Suspect]
     Indication: HYPERLIPIDAEMIA
     Route: 048
     Dates: start: 20090813
  2. CARVEDILOL [Concomitant]
     Indication: HYPERTENSION
     Route: 048
  3. CARVEDILOL [Concomitant]
     Indication: CARDIAC FAILURE CONGESTIVE
  4. HYDRALAZINE HCL [Concomitant]
     Indication: HYPERTENSION
     Route: 048
  5. HYDRALAZINE HCL [Concomitant]
     Indication: CARDIAC FAILURE CONGESTIVE
  6. ISOSORBIDE DINITRATE [Concomitant]
     Indication: HYPERTENSION
     Route: 048
  7. ISOSORBIDE DINITRATE [Concomitant]
     Indication: CARDIAC FAILURE CONGESTIVE
  8. AMLODIPINE [Concomitant]
     Indication: HYPERTENSION
     Route: 048
  9. PLAVIX [Concomitant]
     Indication: CARDIOVASCULAR DISORDER
     Route: 048
  10. DIGOXIN [Concomitant]
     Indication: CARDIAC FAILURE
     Route: 048
  11. LANTUS [Concomitant]
     Indication: TYPE 2 DIABETES MELLITUS
     Dosage: 64 UNITS Q AM AND 28 UNITS Q PM
     Route: 058
  12. ZOCOR [Concomitant]
     Indication: HYPERLIPIDAEMIA
     Route: 048

REACTIONS (1)
  - CHRONIC OBSTRUCTIVE PULMONARY DISEASE [None]
